FAERS Safety Report 6102118-4 (Version None)
Quarter: 2009Q1

REPORT INFORMATION
  Report Type: 
  Country: None (occurrence: None)
  Receive Date: 20090303
  Receipt Date: 20090303
  Transmission Date: 20090719
  Serious: Yes (Other)
  Sender: FDA-Public Use
  Company Number: None

PATIENT
  Sex: Female
  Weight: 51.1 kg

DRUGS (1)
  1. CAMPATH [Suspect]
     Dates: start: 20081112, end: 20081112

REACTIONS (3)
  - PRURITUS [None]
  - RASH ERYTHEMATOUS [None]
  - URTICARIA [None]
